FAERS Safety Report 4614108-9 (Version None)
Quarter: 2005Q1

REPORT INFORMATION
  Report Type: 
  Country: None (occurrence: None)
  Receive Date: 20050316
  Receipt Date: 20050225
  Transmission Date: 20050727
  Serious: Yes (Hospitalization)
  Sender: FDA-Public Use
  Company Number: US_0503113715

PATIENT
  Age: 72 Year
  Sex: Female
  Weight: 77 kg

DRUGS (4)
  1. FORTEO [Suspect]
     Indication: OSTEOPOROSIS
     Dosage: 20 UG/ 1 DAY
     Dates: start: 20041109, end: 20050212
  2. METHOTREXATE [Concomitant]
  3. METICORTEN [Concomitant]
  4. CHLOROQUINE DIPHOSPHATE (CHLOROQUINE DIPHOSPHATE) [Concomitant]

REACTIONS (3)
  - HEADACHE [None]
  - ISCHAEMIA [None]
  - PAIN IN EXTREMITY [None]
